FAERS Safety Report 14495866 (Version 3)
Quarter: 2018Q2

REPORT INFORMATION
  Report Type: Report from Study
  Country: JP (occurrence: JP)
  Receive Date: 20180207
  Receipt Date: 20180511
  Transmission Date: 20180711
  Serious: Yes (Hospitalization)
  Sender: FDA-Public Use
  Company Number: JP-ROCHE-2065663

PATIENT
  Age: 73 Year
  Sex: Male
  Weight: 55 kg

DRUGS (46)
  1. BASILIXIMAB [Concomitant]
     Active Substance: BASILIXIMAB
     Indication: RENAL TRANSPLANT
     Route: 048
     Dates: start: 20170628, end: 20170628
  2. MAGMITT [Concomitant]
     Active Substance: MAGNESIUM OXIDE
     Route: 048
     Dates: start: 20170726
  3. CICLOSPORIN [Concomitant]
     Active Substance: CYCLOSPORINE
     Route: 048
     Dates: start: 20170718, end: 20170804
  4. CICLOSPORIN [Concomitant]
     Active Substance: CYCLOSPORINE
     Route: 048
     Dates: start: 20171114
  5. RITUXIMAB. [Suspect]
     Active Substance: RITUXIMAB
     Route: 041
     Dates: start: 20170317, end: 20170317
  6. CELLCEPT [Suspect]
     Active Substance: MYCOPHENOLATE MOFETIL\MYCOPHENOLATE MOFETIL HYDROCHLORIDE
     Indication: RENAL TRANSPLANT
     Route: 048
     Dates: start: 20170629, end: 20170629
  7. CELLCEPT [Suspect]
     Active Substance: MYCOPHENOLATE MOFETIL\MYCOPHENOLATE MOFETIL HYDROCHLORIDE
     Route: 048
     Dates: start: 20170705, end: 20170725
  8. CELLCEPT [Suspect]
     Active Substance: MYCOPHENOLATE MOFETIL\MYCOPHENOLATE MOFETIL HYDROCHLORIDE
     Route: 048
     Dates: start: 20170726
  9. PREDNISOLONE. [Suspect]
     Active Substance: PREDNISOLONE
     Route: 048
     Dates: start: 20170905, end: 20171002
  10. CICLOSPORIN [Concomitant]
     Active Substance: CYCLOSPORINE
     Indication: RENAL TRANSPLANT
     Route: 048
     Dates: start: 20170626, end: 20170627
  11. CICLOSPORIN [Concomitant]
     Active Substance: CYCLOSPORINE
     Route: 048
     Dates: start: 20170704, end: 20170704
  12. CICLOSPORIN [Concomitant]
     Active Substance: CYCLOSPORINE
     Route: 048
     Dates: start: 20170815, end: 20171002
  13. CICLOSPORIN [Concomitant]
     Active Substance: CYCLOSPORINE
     Route: 048
     Dates: start: 20171003, end: 20171026
  14. NESP [Concomitant]
     Active Substance: DARBEPOETIN ALFA
     Dosage: DOSAGE IS UNCERTAIN.
     Route: 065
     Dates: start: 20170606, end: 20170606
  15. RITUXIMAB. [Suspect]
     Active Substance: RITUXIMAB
     Indication: PROPHYLAXIS AGAINST TRANSPLANT REJECTION
     Route: 041
     Dates: start: 20170627, end: 20170627
  16. PREDNISOLONE. [Suspect]
     Active Substance: PREDNISOLONE
     Route: 048
     Dates: start: 20170701, end: 20170701
  17. TAVEGYL [Concomitant]
     Active Substance: CLEMASTINE FUMARATE
     Indication: PREMEDICATION
     Route: 048
     Dates: start: 20170615, end: 20170615
  18. DAIPHEN [Concomitant]
     Active Substance: SULFAMETHOXAZOLE\TRIMETHOPRIM
     Indication: INFECTION PROPHYLAXIS
     Dosage: 2 DF/ WEEK
     Route: 048
     Dates: start: 20170726
  19. NESP [Concomitant]
     Active Substance: DARBEPOETIN ALFA
     Dosage: DOSAGE IS UNCERTAIN.
     Route: 065
     Dates: start: 20170131, end: 20170131
  20. CELLCEPT [Suspect]
     Active Substance: MYCOPHENOLATE MOFETIL\MYCOPHENOLATE MOFETIL HYDROCHLORIDE
     Route: 048
     Dates: start: 20170630, end: 20170704
  21. PREDNISOLONE. [Suspect]
     Active Substance: PREDNISOLONE
     Indication: RENAL TRANSPLANT
     Route: 048
     Dates: start: 20170629, end: 20170629
  22. TSUMURA DAIKENCHUTO [Concomitant]
     Active Substance: HERBALS
     Route: 048
     Dates: start: 20170726, end: 20180110
  23. REGPARA [Concomitant]
     Active Substance: CINACALCET HYDROCHLORIDE
     Route: 048
     Dates: start: 20171003
  24. NESP [Concomitant]
     Active Substance: DARBEPOETIN ALFA
     Dosage: DOSAGE IS UNCERTAIN.
     Route: 065
     Dates: start: 20171212, end: 20171212
  25. PREDNISOLONE. [Suspect]
     Active Substance: PREDNISOLONE
     Route: 048
     Dates: start: 20170630, end: 20170630
  26. PREDNISOLONE. [Suspect]
     Active Substance: PREDNISOLONE
     Route: 048
     Dates: start: 20171003
  27. CICLOSPORIN [Concomitant]
     Active Substance: CYCLOSPORINE
     Route: 048
     Dates: start: 20170628, end: 20170628
  28. PREDNISOLONE. [Suspect]
     Active Substance: PREDNISOLONE
     Indication: PROPHYLAXIS AGAINST TRANSPLANT REJECTION
     Route: 048
     Dates: start: 20170615, end: 20170628
  29. PREDNISOLONE. [Suspect]
     Active Substance: PREDNISOLONE
     Route: 048
     Dates: start: 20170702, end: 20170702
  30. PREDNISOLONE. [Suspect]
     Active Substance: PREDNISOLONE
     Route: 048
     Dates: start: 20170703, end: 20170725
  31. PREDNISOLONE. [Suspect]
     Active Substance: PREDNISOLONE
     Route: 048
     Dates: start: 20170726, end: 20170801
  32. LOXOPROFEN [Concomitant]
     Active Substance: LOXOPROFEN
     Indication: PREMEDICATION
     Route: 048
     Dates: start: 20170615, end: 20170615
  33. FAMOTIDINE D [Concomitant]
     Active Substance: FAMOTIDINE
     Route: 048
     Dates: start: 20170726, end: 20180110
  34. REGPARA [Concomitant]
     Active Substance: CINACALCET HYDROCHLORIDE
     Indication: HYPERPARATHYROIDISM SECONDARY
     Route: 048
     Dates: start: 20170824, end: 20171002
  35. CICLOSPORIN [Concomitant]
     Active Substance: CYCLOSPORINE
     Route: 048
     Dates: start: 20171027, end: 20171113
  36. NESP [Concomitant]
     Active Substance: DARBEPOETIN ALFA
     Dosage: DOSAGE IS UNCERTAIN.
     Route: 065
     Dates: start: 20170815, end: 20170815
  37. RITUXIMAB. [Suspect]
     Active Substance: RITUXIMAB
     Indication: RENAL TRANSPLANT
     Dosage: 10 MG/ML
     Route: 041
     Dates: start: 20170615, end: 20170615
  38. CELLCEPT [Suspect]
     Active Substance: MYCOPHENOLATE MOFETIL\MYCOPHENOLATE MOFETIL HYDROCHLORIDE
     Indication: PROPHYLAXIS AGAINST TRANSPLANT REJECTION
     Route: 048
     Dates: start: 20170615, end: 20170627
  39. LOXOPROFEN [Concomitant]
     Active Substance: LOXOPROFEN
     Route: 048
     Dates: start: 20170627, end: 20170627
  40. TAVEGYL [Concomitant]
     Active Substance: CLEMASTINE FUMARATE
     Route: 048
     Dates: start: 20170627, end: 20170627
  41. BASILIXIMAB [Concomitant]
     Active Substance: BASILIXIMAB
     Route: 048
     Dates: start: 20170702, end: 20170702
  42. URIEF [Concomitant]
     Active Substance: SILODOSIN
     Route: 048
     Dates: start: 20170726
  43. CICLOSPORIN [Concomitant]
     Active Substance: CYCLOSPORINE
     Route: 048
     Dates: start: 20170629, end: 20170703
  44. PREDNISOLONE. [Suspect]
     Active Substance: PREDNISOLONE
     Route: 048
     Dates: start: 20170802, end: 20170904
  45. SARPOGRELATE HYDROCHLORIDE [Concomitant]
     Active Substance: SARPOGRELATE HYDROCHLORIDE
     Route: 048
     Dates: start: 20170726, end: 20180110
  46. CICLOSPORIN [Concomitant]
     Active Substance: CYCLOSPORINE
     Route: 048
     Dates: start: 20170705, end: 20170717

REACTIONS (1)
  - Lymphocele [Recovered/Resolved]

NARRATIVE: CASE EVENT DATE: 20170824
